FAERS Safety Report 6466162-X (Version None)
Quarter: 2009Q4

REPORT INFORMATION
  Report Type: 
  Country: None (occurrence: None)
  Receive Date: 20091202
  Receipt Date: 20091117
  Transmission Date: 20100525
  Serious: Yes (Other)
  Sender: FDA-Public Use
  Company Number: FR-EISAI INC.-E3810-03256-SPO-FR

PATIENT
  Sex: Male
  Weight: 83 kg

DRUGS (1)
  1. PARIET (RABEPRAZOLE) [Suspect]
     Indication: HIATUS HERNIA
     Route: 048
     Dates: end: 20080101

REACTIONS (1)
  - GYNAECOMASTIA [None]
